FAERS Safety Report 7271698-8 (Version None)
Quarter: 2011Q1

REPORT INFORMATION
  Report Type: 
  Country: None (occurrence: None)
  Receive Date: 20110126
  Receipt Date: 20110111
  Transmission Date: 20110831
  Serious: Yes (Hospitalization, Other)
  Sender: FDA-Public Use
  Company Number: AUR-APL-2010-03172

PATIENT
  Sex: Female

DRUGS (3)
  1. AMIODARONE HCL [Suspect]
  2. METOPROLOL [Suspect]
     Indication: TACHYARRHYTHMIA
     Dosage: 25MG - ORAL
     Route: 048
  3. BOSENTAN [Concomitant]

REACTIONS (10)
  - METABOLIC ACIDOSIS [None]
  - CARDIOVASCULAR INSUFFICIENCY [None]
  - POTENTIATING DRUG INTERACTION [None]
  - ELECTROCARDIOGRAM T WAVE INVERSION [None]
  - BRADYCARDIA [None]
  - HYPOXIA [None]
  - DRUG INTERACTION [None]
  - CARDIAC ARREST [None]
  - BLOOD PRESSURE DECREASED [None]
  - RESPIRATORY ALKALOSIS [None]
